FAERS Safety Report 13373612 (Version 1)
Quarter: 2017Q1

REPORT INFORMATION
  Report Type: Spontaneous
  Country: CA (occurrence: CA)
  Receive Date: 20170327
  Receipt Date: 20170327
  Transmission Date: 20170429
  Serious: No
  Sender: FDA-Public Use
  Company Number: CA-HILL DERMACEUTICALS, INC.-1064684

PATIENT
  Sex: Female

DRUGS (1)
  1. DERMA-SMOOTHE/FS [Suspect]
     Active Substance: FLUOCINOLONE ACETONIDE
     Route: 061

REACTIONS (2)
  - Product odour abnormal [None]
  - Drug ineffective [Unknown]
